FAERS Safety Report 6880879-4 (Version None)
Quarter: 2010Q3

REPORT INFORMATION
  Report Type: 
  Country: None (occurrence: None)
  Receive Date: 20100728
  Receipt Date: 20100722
  Transmission Date: 20110219
  Serious: Yes (Other)
  Sender: FDA-Public Use
  Company Number: US-GILEAD-2010-0029929

PATIENT
  Sex: Female

DRUGS (17)
  1. LETAIRIS [Suspect]
     Indication: PULMONARY ARTERIAL HYPERTENSION
     Route: 048
     Dates: start: 20100209
  2. GLUCOSAMINE CHONDROITIN [Concomitant]
  3. FISH OIL [Concomitant]
  4. REVATIO [Concomitant]
  5. DIOVAN [Concomitant]
  6. CALCIUM [Concomitant]
  7. LASIX [Concomitant]
  8. COUMADIN [Concomitant]
  9. SINGULAIR [Concomitant]
  10. JANUVIA [Concomitant]
  11. METFORMIN HCL [Concomitant]
  12. LEXAPRO [Concomitant]
  13. VIVELLE-DOT [Concomitant]
  14. FERROUS SULFATE [Concomitant]
  15. MULTI-VITAMINS [Concomitant]
  16. RED YEAST RICE [Concomitant]
  17. SODIUM BICARBONATE [Concomitant]

REACTIONS (3)
  - BLOOD CREATININE INCREASED [None]
  - BLOOD TEST ABNORMAL [None]
  - BLOOD UREA INCREASED [None]
